FAERS Safety Report 10231621 (Version 2)
Quarter: 2014Q3

REPORT INFORMATION
  Report Type: Report from Study
  Country: CA (occurrence: CA)
  Receive Date: 20140611
  Receipt Date: 20140715
  Transmission Date: 20150326
  Serious: Yes (Hospitalization)
  Sender: FDA-Public Use
  Company Number: CA-GILEAD-2014-0104568

PATIENT
  Age: 16 Day
  Sex: Male
  Weight: 3.49 kg

DRUGS (1)
  1. TENOFOVIR DISOPROXIL FUMARATE [Suspect]
     Active Substance: TENOFOVIR DISOPROXIL FUMARATE
     Indication: HEPATITIS B
     Dosage: 300 MG, UNK
     Route: 063
     Dates: start: 201208

REACTIONS (1)
  - Exposure during breast feeding [Unknown]

NARRATIVE: CASE EVENT DATE: 20140528
